FAERS Safety Report 15725666 (Version 1)
Quarter: 2018Q4

REPORT INFORMATION
  Report Type: Spontaneous
  Country: FR (occurrence: FR)
  Receive Date: 20181215
  Receipt Date: 20181215
  Transmission Date: 20190205
  Serious: Yes (Hospitalization)
  Sender: FDA-Public Use
  Company Number: FR-TEVA-2018-FR-986326

PATIENT
  Age: 84 Year
  Sex: Male

DRUGS (11)
  1. MIANSERINE (CHLORHYDRATE DE) [Suspect]
     Active Substance: MIANSERIN HYDROCHLORIDE
     Dosage: 60 MILLIGRAM DAILY;
     Route: 048
     Dates: start: 20180919, end: 20181019
  2. MICROLAX [Concomitant]
  3. SERESTA 50 MG, COMPRIM? S?CABLE [Concomitant]
     Active Substance: OXAZEPAM
  4. DONEPEZIL (CHLORHYDRATE DE) [Concomitant]
  5. VASTEN 20 MG, COMPRIM? S?CABLE [Concomitant]
  6. CLOZAPINE. [Suspect]
     Active Substance: CLOZAPINE
     Dosage: 25 MILLIGRAM DAILY;
     Route: 048
     Dates: start: 20160606, end: 20181023
  7. PLAVIX [Concomitant]
     Active Substance: CLOPIDOGREL BISULFATE
  8. FUMAFER [Concomitant]
     Active Substance: FERROUS FUMARATE
  9. DIAMICRON 60 MG, COMPRIM? S?CABLE ? LIB?RATION MODIFI?E [Concomitant]
     Active Substance: GLICLAZIDE
  10. TRIMEBUTINE [Concomitant]
     Active Substance: TRIMEBUTINE
  11. LACTULOSE BIPHAR 10 G/15 ML, SOLUTION BUVABLE EN SACHET-DOSE [Concomitant]

REACTIONS (2)
  - Pancreatitis acute [Recovered/Resolved]
  - Hepatitis acute [Recovered/Resolved]

NARRATIVE: CASE EVENT DATE: 20181019
